FAERS Safety Report 6537894-X (Version None)
Quarter: 2010Q1

REPORT INFORMATION
  Report Type: 
  Country: None (occurrence: None)
  Receive Date: 20100112
  Receipt Date: 20100112
  Transmission Date: 20100710
  Serious: Yes (Other)
  Sender: FDA-Public Use
  Company Number: None

PATIENT
  Sex: Female
  Weight: 68.0396 kg

DRUGS (2)
  1. FENTANYL PATCH [Suspect]
     Dosage: 25 MCG; 50 MCG
     Dates: start: 20080620, end: 20080630
  2. FENTANYL PATCH [Suspect]
     Dosage: 25 MCG; 50 MCG
     Dates: start: 20080630, end: 20081230

REACTIONS (2)
  - PRODUCT ADHESION ISSUE [None]
  - PRODUCT SUBSTITUTION ISSUE [None]
